FAERS Safety Report 16677823 (Version 2)
Quarter: 2020Q1

REPORT INFORMATION
  Report Type: Report from Study
  Country: ES (occurrence: ES)
  Receive Date: 20190807
  Receipt Date: 20200312
  Transmission Date: 20200409
  Serious: Yes (Other)
  Sender: FDA-Public Use
  Company Number: ES-TEVA-2019-ES-1086507

PATIENT
  Sex: Male

DRUGS (1)
  1. COPAXONE [Suspect]
     Active Substance: GLATIRAMER ACETATE
     Indication: MULTIPLE SCLEROSIS
     Route: 058
     Dates: start: 20170605

REACTIONS (3)
  - Choking sensation [Recovered/Resolved]
  - Immediate post-injection reaction [Unknown]
  - Tachycardia [Recovered/Resolved]

NARRATIVE: CASE EVENT DATE: 2019
